FAERS Safety Report 8963986 (Version 4)
Quarter: 2013Q2

REPORT INFORMATION
  Report Type: Report from Study
  Country: CZ (occurrence: CZ)
  Receive Date: 20121214
  Receipt Date: 20130429
  Transmission Date: 20140414
  Serious: Yes (Hospitalization)
  Sender: FDA-Public Use
  Company Number: CZ-ASTELLAS-2012EU010630

PATIENT
  Age: 53 Year
  Sex: Female
  Weight: 69 kg

DRUGS (1)
  1. BLINDED SOLIFENACIN-MIRABEGRON [Suspect]
     Indication: HYPERTONIC BLADDER
     Dosage: UNK
     Route: 048
     Dates: start: 20121006, end: 20121228

REACTIONS (2)
  - Pulmonary embolism [Recovered/Resolved with Sequelae]
  - Pyelonephritis [Recovered/Resolved]
